FAERS Safety Report 12548179 (Version 8)
Quarter: 2016Q4

REPORT INFORMATION
  Report Type: Spontaneous
  Country: US (occurrence: US)
  Receive Date: 20160712
  Receipt Date: 20161227
  Transmission Date: 20170207
  Serious: No
  Sender: FDA-Public Use
  Company Number: US-PFIZER INC-2016310502

PATIENT
  Age: 73 Year
  Sex: Female
  Weight: 73.47 kg

DRUGS (6)
  1. IBRANCE [Suspect]
     Active Substance: PALBOCICLIB
     Dosage: 75 MG, CYCLIC (DAY 1-21 Q 28 DAYS)
     Route: 048
     Dates: start: 20160621
  2. IBRANCE [Suspect]
     Active Substance: PALBOCICLIB
     Dosage: 75 MG, CYCLIC (DAYS 1-21 Q28DAYS)
     Route: 048
     Dates: start: 20160621
  3. IBRANCE [Suspect]
     Active Substance: PALBOCICLIB
     Dosage: 75 MG, CYCLIC (DAILY; 21 DAYS ON 7 DAYS OFF)
     Route: 048
     Dates: start: 20160616
  4. IBRANCE [Suspect]
     Active Substance: PALBOCICLIB
     Dosage: 125 MG, 1X/DAY (DAYS 1-21 EVERY 28 DAYS)
     Route: 048
     Dates: start: 20160428, end: 20160519
  5. IBRANCE [Suspect]
     Active Substance: PALBOCICLIB
     Indication: BREAST CANCER METASTATIC
     Dosage: 75 MG, CYCLIC (1D-21 Q 28D)
     Route: 048
     Dates: start: 20160621
  6. IBRANCE [Suspect]
     Active Substance: PALBOCICLIB
     Dosage: 75 MG, CYCLIC (1D-21 Q 28D)
     Route: 048
     Dates: start: 20160621

REACTIONS (19)
  - Diarrhoea [Unknown]
  - Blood count abnormal [Unknown]
  - Asthma [Unknown]
  - Headache [Unknown]
  - Cystitis [Unknown]
  - Musculoskeletal chest pain [Unknown]
  - Platelet count decreased [Unknown]
  - Bronchitis [Unknown]
  - Lymphadenopathy [Unknown]
  - Cough [Unknown]
  - Productive cough [Unknown]
  - Decreased appetite [Unknown]
  - Blood pressure increased [Unknown]
  - Rhinorrhoea [Unknown]
  - Hypersensitivity [Unknown]
  - Dyspnoea [Unknown]
  - Alopecia [Not Recovered/Not Resolved]
  - Epistaxis [Unknown]
  - Urinary tract infection [Unknown]

NARRATIVE: CASE EVENT DATE: 201606
